FAERS Safety Report 7508580-4 (Version None)
Quarter: 2011Q2

REPORT INFORMATION
  Report Type: 
  Country: None (occurrence: None)
  Receive Date: 20110527
  Receipt Date: 20100414
  Transmission Date: 20111010
  Serious: No
  Sender: FDA-Public Use
  Company Number: A0855273A

PATIENT

DRUGS (1)
  1. FLOLAN [Suspect]
     Dosage: .5UKM UNKNOWN
     Route: 042

REACTIONS (1)
  - DRUG ADMINISTRATION ERROR [None]
